FAERS Safety Report 5310695-6 (Version None)
Quarter: 2007Q2

REPORT INFORMATION
  Report Type: 
  Country: None (occurrence: None)
  Receive Date: 20070428
  Receipt Date: 20070416
  Transmission Date: 20071010
  Serious: Yes (Disabling)
  Sender: FDA-Public Use
  Company Number: FR-PFIZER INC-2007030943

PATIENT
  Age: 57 Year
  Sex: Male

DRUGS (2)
  1. TAHOR [Suspect]
     Indication: HYPERCHOLESTEROLAEMIA
  2. CRESTOR [Suspect]

REACTIONS (3)
  - AMYOTROPHY [None]
  - MUSCULAR WEAKNESS [None]
  - MYALGIA [None]
